FAERS Safety Report 14662796 (Version 9)
Quarter: 2018Q4

REPORT INFORMATION
  Report Type: Report from Study
  Country: BE (occurrence: BE)
  Receive Date: 20180321
  Receipt Date: 20181224
  Transmission Date: 20190204
  Serious: Yes (Life-Threatening, Hospitalization)
  Sender: FDA-Public Use
  Company Number: BE-ROCHE-1920995

PATIENT
  Age: 44 Year
  Sex: Female
  Weight: 88 kg

DRUGS (29)
  1. CETIRIZINE [Concomitant]
     Active Substance: CETIRIZINE HYDROCHLORIDE
     Dosage: ONCE BEFORE INFUSION
     Route: 048
     Dates: start: 20161215, end: 20161215
  2. CETIRIZINE [Concomitant]
     Active Substance: CETIRIZINE HYDROCHLORIDE
     Route: 048
     Dates: start: 20181018, end: 20181018
  3. DAFALGAN FORTE [Concomitant]
     Dosage: ONCE BEFORE INFUSION
     Route: 048
     Dates: start: 20161215, end: 20161215
  4. PRIORIN [Concomitant]
     Route: 048
     Dates: start: 20171103
  5. COLITOFALK [Concomitant]
     Active Substance: MESALAMINE
     Indication: PROPHYLAXIS
     Route: 048
     Dates: start: 20170523, end: 20170718
  6. CETIRIZINE [Concomitant]
     Active Substance: CETIRIZINE HYDROCHLORIDE
     Dosage: ONCE BEFORE INFUSION
     Route: 048
     Dates: start: 20171103, end: 20171103
  7. DAFALGAN FORTE [Concomitant]
     Dosage: AS NEEDED (PRN)
     Route: 048
     Dates: start: 20180503, end: 20180503
  8. FRAXODI [Concomitant]
     Active Substance: NADROPARIN CALCIUM
     Route: 058
     Dates: start: 20180416, end: 20180425
  9. XARELTO [Concomitant]
     Active Substance: RIVAROXABAN
     Route: 048
     Dates: start: 2010, end: 20170412
  10. DAFALGAN FORTE [Concomitant]
     Dosage: AS NEEDED (PRN)
     Route: 048
     Dates: start: 20161201, end: 20161201
  11. DAFALGAN FORTE [Concomitant]
     Dosage: ONCE BEFORE INFUSION
     Route: 048
     Dates: start: 20171103, end: 20171103
  12. PANTOMED (BELGIUM) [Concomitant]
     Active Substance: PANTOPRAZOLE SODIUM
     Indication: PROPHYLAXIS
     Route: 065
     Dates: start: 20180309
  13. FRAXODI [Concomitant]
     Active Substance: NADROPARIN CALCIUM
     Route: 058
     Dates: start: 20170420, end: 20170718
  14. XARELTO [Concomitant]
     Active Substance: RIVAROXABAN
     Route: 048
     Dates: start: 20170719, end: 20180329
  15. D-CURE [Concomitant]
     Active Substance: CHOLECALCIFEROL
     Dosage: 25.000 IE/ML
     Route: 048
     Dates: start: 20160304
  16. SUMATRIPTAN. [Concomitant]
     Active Substance: SUMATRIPTAN
     Route: 048
     Dates: start: 20161013
  17. CETIRIZINE [Concomitant]
     Active Substance: CETIRIZINE HYDROCHLORIDE
     Dosage: ONCE BEFORE INFUSION
     Route: 048
     Dates: start: 20170522, end: 20170522
  18. CETIRIZINE [Concomitant]
     Active Substance: CETIRIZINE HYDROCHLORIDE
     Dosage: ONCE BEFORE INFUSION
     Route: 048
     Dates: start: 20180503, end: 20180503
  19. DAFALGAN FORTE [Concomitant]
     Route: 048
     Dates: start: 20181018, end: 20181018
  20. DAFALGAN FORTE [Concomitant]
     Dosage: ONCE BEFORE INFUSION
     Route: 048
     Dates: start: 20170522, end: 20170522
  21. OCRELIZUMAB. [Suspect]
     Active Substance: OCRELIZUMAB
     Route: 042
     Dates: start: 20181018
  22. IBUPROFEN. [Concomitant]
     Active Substance: IBUPROFEN
     Indication: ARTHRITIS INFECTIVE
     Route: 048
     Dates: start: 20180223, end: 20180227
  23. OCRELIZUMAB. [Suspect]
     Active Substance: OCRELIZUMAB
     Indication: RELAPSING-REMITTING MULTIPLE SCLEROSIS
     Dosage: LAST DOSE PRIOR TO HEMORRHAGIC SHOCK ONSET 15/DEC/2016, 300 MG?LAST DOSE PRIOR TO ULCERATIVE COLITIS
     Route: 042
     Dates: start: 20161201
  24. METHYLPREDNISOLONE. [Suspect]
     Active Substance: METHYLPREDNISOLONE
     Indication: PREMEDICATION
     Dosage: LAST DOSE PRIOR TO HEMORRHAGIC SHOCK ONSET 15/DEC/2016, 125 MG?LAST DOSE PRIOR TO ULCERATIVE COLITIS
     Route: 042
     Dates: start: 20161201
  25. XARELTO [Concomitant]
     Active Substance: RIVAROXABAN
     Route: 048
     Dates: start: 20180427
  26. FOLAVIT [Concomitant]
     Active Substance: FOLIC ACID
     Route: 048
     Dates: start: 20150304
  27. RILATINE [Concomitant]
     Active Substance: METHYLPHENIDATE HYDROCHLORIDE
     Route: 048
     Dates: start: 20150304, end: 20171102
  28. CETIRIZINE [Concomitant]
     Active Substance: CETIRIZINE HYDROCHLORIDE
     Dosage: ONCE BEFORE INFUSION
     Route: 048
     Dates: start: 20161201, end: 20161201
  29. MEDIKINET [Concomitant]
     Active Substance: METHYLPHENIDATE
     Route: 048
     Dates: start: 20171103

REACTIONS (2)
  - Shock haemorrhagic [Recovered/Resolved]
  - Colitis ulcerative [Not Recovered/Not Resolved]

NARRATIVE: CASE EVENT DATE: 20170412
